FAERS Safety Report 8388474-5 (Version None)
Quarter: 2012Q2

REPORT INFORMATION
  Report Type: 
  Country: None (occurrence: None)
  Receive Date: 20120525
  Receipt Date: 20120521
  Transmission Date: 20120825
  Serious: Yes (Other)
  Sender: FDA-Public Use
  Company Number: US-ROCHE-1011542

PATIENT
  Sex: Female

DRUGS (1)
  1. ZELBORAF [Suspect]
     Indication: PRODUCT USED FOR UNKNOWN INDICATION
     Route: 065

REACTIONS (7)
  - DIARRHOEA [None]
  - NEOPLASM [None]
  - HEADACHE [None]
  - MELANOCYTIC NAEVUS [None]
  - ARTHRALGIA [None]
  - MASS [None]
  - MYALGIA [None]
